FAERS Safety Report 5298141-2 (Version None)
Quarter: 2007Q1

REPORT INFORMATION
  Report Type: 
  Country: None (occurrence: None)
  Receive Date: 20070201
  Receipt Date: 20061031
  Transmission Date: 20070707
  Serious: No
  Sender: FDA-Public Use
  Company Number: 2006PV024274

PATIENT
  Age: 58 Year
  Sex: Male
  Weight: 96.1626 kg

DRUGS (3)
  1. BYETTA [Suspect]
     Indication: DIABETES MELLITUS NON-INSULIN-DEPENDENT
     Dosage: 10 MCG; 5 MCG: BID; SC
     Route: 058
     Dates: start: 20060601, end: 20060801
  2. BYETTA [Suspect]
     Indication: DIABETES MELLITUS NON-INSULIN-DEPENDENT
     Dosage: 10 MCG; 5 MCG: BID; SC
     Route: 058
     Dates: start: 20060801
  3. GLUCOPHAGE [Concomitant]

REACTIONS (1)
  - WEIGHT DECREASED [None]
